FAERS Safety Report 16326564 (Version 2)
Quarter: 2019Q2

REPORT INFORMATION
  Report Type: Report from Study
  Country: US (occurrence: US)
  Receive Date: 20190517
  Receipt Date: 20190524
  Transmission Date: 20190711
  Serious: Yes (Other)
  Sender: FDA-Public Use
  Company Number: US-PFIZER INC-2019203370

PATIENT
  Age: 68 Year
  Sex: Male
  Weight: 79.7 kg

DRUGS (12)
  1. DAUNORUBICIN [Suspect]
     Active Substance: DAUNORUBICIN
     Indication: ACUTE MYELOID LEUKAEMIA
     Dosage: 112 MG, UNK
     Route: 041
     Dates: start: 20190502, end: 20190504
  2. ONDANSETRON HYDROCHLORIDE. [Suspect]
     Active Substance: ONDANSETRON HYDROCHLORIDE
     Indication: ANTIEMETIC SUPPORTIVE CARE
     Dosage: 8 MG, 3X/DAY (EVERY 8 HOURS)
     Route: 048
     Dates: start: 20190506
  3. BLINDED PF-04449913 [Suspect]
     Active Substance: GLASDEGIB
     Indication: ACUTE MYELOID LEUKAEMIA
     Dosage: ONCE DAILY CONTINOUS
     Route: 048
     Dates: start: 20190502
  4. CYTARABINE. [Suspect]
     Active Substance: CYTARABINE
     Indication: ACUTE MYELOID LEUKAEMIA
     Dosage: 186 MG, DAILY BY CONTIMOUS INFUSION
     Route: 041
     Dates: start: 20190502, end: 20190508
  5. TYLENOL [Concomitant]
     Active Substance: ACETAMINOPHEN
     Indication: PYREXIA
     Dosage: 1000 MG, EVERY 6 HOURS AS NEEDED
     Route: 048
     Dates: start: 20190505
  6. BLINDED PLACEBO [Suspect]
     Active Substance: INVESTIGATIONAL PRODUCT
     Indication: ACUTE MYELOID LEUKAEMIA
     Dosage: ONCE DAILY CONTINOUS
     Route: 048
     Dates: start: 20190502
  7. ZYPREXA [Suspect]
     Active Substance: OLANZAPINE
     Indication: ANTIEMETIC SUPPORTIVE CARE
     Dosage: 5 MG, 1X/DAY AT BEDTIME
     Route: 048
     Dates: start: 20190506
  8. ZOVIRAX [Concomitant]
     Active Substance: ACYCLOVIR
     Indication: PROPHYLAXIS
     Dosage: 400 MG, 2X/DAY
     Route: 048
     Dates: start: 20190429
  9. ZOSYN [Concomitant]
     Active Substance: PIPERACILLIN SODIUM\TAZOBACTAM SODIUM
     Indication: ANTIBIOTIC THERAPY
     Dosage: 3.375 G, IN 50 ML EVERY 6 HOURS
     Route: 042
     Dates: start: 20190505
  10. BLINDED GLASDEGIB [Suspect]
     Active Substance: GLASDEGIB
     Indication: ACUTE MYELOID LEUKAEMIA
     Dosage: ONCE DAILY CONTINOUS
     Route: 048
     Dates: start: 20190502
  11. ALLOPURINOL. [Concomitant]
     Active Substance: ALLOPURINOL
     Indication: PROPHYLAXIS
     Dosage: 300 MG, DAILY
     Route: 048
     Dates: start: 20190429
  12. NOXAFIL [Concomitant]
     Active Substance: POSACONAZOLE
     Indication: ANTIFUNGAL PROPHYLAXIS
     Dosage: 300 MG, DAILY
     Route: 048
     Dates: start: 20190505

REACTIONS (1)
  - Electrocardiogram QT prolonged [Not Recovered/Not Resolved]

NARRATIVE: CASE EVENT DATE: 20190510
